FAERS Safety Report 5000089-5 (Version None)
Quarter: 2006Q2

REPORT INFORMATION
  Report Type: 
  Country: None (occurrence: None)
  Receive Date: 20060509
  Receipt Date: 20060420
  Transmission Date: 20061013
  Serious: Yes (Hospitalization)
  Sender: FDA-Public Use
  Company Number: PA200604000885

PATIENT
  Age: 35 Year
  Sex: Female

DRUGS (3)
  1. OLANZAPINE [Suspect]
     Indication: BIPOLAR DISORDER
     Dosage: UNK
     Route: 065
     Dates: start: 20020101
  2. CLONAZEPAM [Concomitant]
  3. DIAZEPAM [Concomitant]

REACTIONS (2)
  - HYPONATRAEMIA [None]
  - RHABDOMYOLYSIS [None]
